FAERS Safety Report 15996764 (Version 10)
Quarter: 2020Q4

REPORT INFORMATION
  Report Type: Report from Study
  Country: DE (occurrence: DE)
  Receive Date: 20190222
  Receipt Date: 20201207
  Transmission Date: 20210113
  Serious: Yes (Life-Threatening, Hospitalization, Other)
  Sender: FDA-Public Use
  Company Number: DE-INCYTE CORPORATION-2019IN001453

PATIENT

DRUGS (29)
  1. JAKAVI [Suspect]
     Active Substance: RUXOLITINIB
     Indication: MYELODYSPLASTIC SYNDROME
     Dosage: 20 MG, BID
     Route: 065
     Dates: start: 201805, end: 20181002
  2. HYDROXYCARBAMIDE [Suspect]
     Active Substance: HYDROXYUREA
     Indication: PRIMARY MYELOFIBROSIS
     Dosage: 500 MG, BID
     Route: 065
     Dates: start: 20180907, end: 20180916
  3. HYDROXYCARBAMIDE [Suspect]
     Active Substance: HYDROXYUREA
     Dosage: 500 MG, TID
     Route: 065
     Dates: start: 20180923, end: 20180924
  4. HYDROXYCARBAMIDE [Suspect]
     Active Substance: HYDROXYUREA
     Dosage: 500 MG 3X WEEKLY + 1000 MG 4X WEEKLY(785.7 MG DAILY DOSE)
     Route: 065
     Dates: start: 20181013, end: 20181023
  5. HYDROXYCARBAMIDE [Suspect]
     Active Substance: HYDROXYUREA
     Dosage: 1000 MG, (1000 MG-0-1000 MG) BID
     Route: 065
     Dates: start: 20190305, end: 20190408
  6. HYDROXYCARBAMIDE [Suspect]
     Active Substance: HYDROXYUREA
     Dosage: 1500 MG (1000 MG-0-500MG)
     Route: 065
     Dates: start: 20190509, end: 20190519
  7. JAKAVI [Suspect]
     Active Substance: RUXOLITINIB
     Dosage: 10 MG, BID
     Route: 065
     Dates: start: 20181019
  8. EXJADE [Suspect]
     Active Substance: DEFERASIROX
     Indication: MYELODYSPLASTIC SYNDROME
     Dosage: 21 MG/KG (BODYWEIGHT/DAY=4 TABLETS A 360MG)
     Route: 065
     Dates: start: 20180810, end: 20190123
  9. HYDROXYCARBAMIDE [Suspect]
     Active Substance: HYDROXYUREA
     Dosage: 500 MG, BID
     Route: 065
     Dates: start: 20180925, end: 20181011
  10. HYDROXYCARBAMIDE [Suspect]
     Active Substance: HYDROXYUREA
     Dosage: 1500 MG(1000MG-0-500MG)
     Route: 065
     Dates: start: 20190712
  11. ENBREL [Concomitant]
     Active Substance: ETANERCEPT
     Indication: RHEUMATOID ARTHRITIS
     Dosage: 7.14 MG, BIW
     Route: 065
     Dates: start: 201805, end: 20180902
  12. PANTOPRAZOLE [Concomitant]
     Active Substance: PANTOPRAZOLE
     Indication: PROPHYLAXIS
     Dosage: 40 MG, QD
     Route: 065
     Dates: start: 201805
  13. HYDROXYCARBAMIDE [Suspect]
     Active Substance: HYDROXYUREA
     Indication: MYELODYSPLASTIC SYNDROME
     Dosage: 500 MG, QD
     Route: 065
     Dates: start: 201805, end: 20180906
  14. HYDROXYCARBAMIDE [Suspect]
     Active Substance: HYDROXYUREA
     Dosage: 1500 MG, BID (1000MG-0-500MG)
     Route: 065
     Dates: start: 20190617, end: 20190624
  15. HYDROXYCARBAMIDE [Suspect]
     Active Substance: HYDROXYUREA
     Dosage: (1200- 3 DAYS), (500MG-0-500MG 4 DAYS)
     Route: 065
     Dates: start: 20190704, end: 20190711
  16. TORASEMIDE [Concomitant]
     Active Substance: TORSEMIDE
     Indication: RHEUMATOID ARTHRITIS
     Dosage: 10 MG, QD
     Route: 065
     Dates: start: 201805
  17. HYDROXYCARBAMIDE [Suspect]
     Active Substance: HYDROXYUREA
     Dosage: 1000 MG, BID (1000-0-1000MG)
     Route: 065
     Dates: start: 20190520, end: 20190616
  18. HYDROXYCARBAMIDE [Suspect]
     Active Substance: HYDROXYUREA
     Dosage: 500 MG, BID (500MG-0-500MG)
     Route: 065
     Dates: start: 20190625, end: 20190703
  19. MACROGOL [Concomitant]
     Active Substance: POLYETHYLENE GLYCOLS
     Indication: LARGE INTESTINAL OBSTRUCTION
     Dosage: 13.7 G, PRN
     Route: 065
     Dates: start: 201805
  20. PREDNISOLONE. [Concomitant]
     Active Substance: PREDNISOLONE
     Dosage: 2.5 MG
     Route: 065
     Dates: start: 20190409
  21. JAKAVI [Suspect]
     Active Substance: RUXOLITINIB
     Indication: PRIMARY MYELOFIBROSIS
     Dosage: 15 MG, BID
     Route: 065
     Dates: start: 20181003, end: 20181018
  22. HYDROXYCARBAMIDE [Suspect]
     Active Substance: HYDROXYUREA
     Dosage: 500 MG, BID
     Route: 065
     Dates: start: 20181024, end: 20190304
  23. ALLOPURINOL;BENZBROMARONE [Concomitant]
     Indication: PROPHYLAXIS
     Dosage: 100 MG, QD
     Route: 065
     Dates: start: 201805
  24. FRESUBIN PROTEIN ENERGY [Concomitant]
     Indication: CACHEXIA
     Dosage: 2 DF, QD
     Route: 065
     Dates: start: 201805
  25. EXJADE [Suspect]
     Active Substance: DEFERASIROX
     Indication: PRIMARY MYELOFIBROSIS
     Dosage: 26.5 MG/KG (BODYWEIGHT/DAY=5 TABLETS A 360MG)
     Route: 065
     Dates: start: 20190124, end: 20190718
  26. HYDROXYCARBAMIDE [Suspect]
     Active Substance: HYDROXYUREA
     Dosage: 500 MG (500 MG-0-500 MG)
     Route: 065
     Dates: end: 20190508
  27. PREDNISOLONE. [Concomitant]
     Active Substance: PREDNISOLONE
     Indication: RHEUMATOID ARTHRITIS
     Dosage: 5 MG, QD
     Route: 065
     Dates: start: 201805, end: 20180902
  28. PREDNISOLONE. [Concomitant]
     Active Substance: PREDNISOLONE
     Dosage: 7.5 MG, EVERY 2 DAYS (3.75 MG)
     Route: 065
     Dates: start: 20180903
  29. HYDROXYCARBAMIDE [Suspect]
     Active Substance: HYDROXYUREA
     Dosage: 500 MG, QD
     Route: 065
     Dates: start: 20180917, end: 20180922

REACTIONS (17)
  - Concomitant disease aggravated [Not Recovered/Not Resolved]
  - Blood uric acid increased [Unknown]
  - C-reactive protein increased [Unknown]
  - Blood folate decreased [Unknown]
  - Blood urea increased [Unknown]
  - Leukocytosis [Not Recovered/Not Resolved]
  - Serum ferritin increased [Unknown]
  - Back pain [Unknown]
  - Infection [Recovered/Resolved]
  - Wound infection [Unknown]
  - Anaemia [Recovering/Resolving]
  - Blood bilirubin increased [Unknown]
  - C-reactive protein decreased [Unknown]
  - Hyperleukocytosis [Recovering/Resolving]
  - Blood lactate dehydrogenase increased [Unknown]
  - Compartment syndrome [Unknown]
  - Thrombocytopenia [Not Recovered/Not Resolved]

NARRATIVE: CASE EVENT DATE: 20180206
